FAERS Safety Report 20492504 (Version 1)
Quarter: 2022Q1

REPORT INFORMATION
  Report Type: Spontaneous
  Country: GB (occurrence: GB)
  Receive Date: 20220219
  Receipt Date: 20220219
  Transmission Date: 20220423
  Serious: Yes (Other)
  Sender: FDA-Public Use
  Company Number: GB-002147023-PHHY2017GB143658

PATIENT
  Age: 75 Year
  Sex: Male

DRUGS (1)
  1. ZOLEDRONIC ACID [Suspect]
     Active Substance: ZOLEDRONIC ACID
     Indication: Plasma cell myeloma
     Dosage: UNK
     Route: 042

REACTIONS (4)
  - Osteonecrosis of jaw [Recovering/Resolving]
  - Oral discomfort [Unknown]
  - Bone disorder [Recovering/Resolving]
  - Impaired healing [Recovering/Resolving]
